FAERS Safety Report 23355495 (Version 2)
Quarter: 2024Q2

REPORT INFORMATION
  Report Type: Spontaneous
  Country: CA (occurrence: CA)
  Receive Date: 20240102
  Receipt Date: 20240403
  Transmission Date: 20240716
  Serious: Yes (Other)
  Sender: FDA-Public Use
  Company Number: CA-PFIZER INC-202300453527

PATIENT
  Age: 53 Year
  Sex: Female

DRUGS (1)
  1. ENBREL [Suspect]
     Active Substance: ETANERCEPT
     Indication: Rheumatoid arthritis
     Dosage: 1 DOSAGE FORM (1 DF, DOSAGE NOT AVAILABLE)
     Route: 065

REACTIONS (3)
  - Blindness [Not Recovered/Not Resolved]
  - Joint arthroplasty [Unknown]
  - Condition aggravated [Unknown]
